FAERS Safety Report 5733160-0 (Version None)
Quarter: 2008Q2

REPORT INFORMATION
  Report Type: 
  Country: None (occurrence: None)
  Receive Date: 20080507
  Receipt Date: 20080421
  Transmission Date: 20081010
  Serious: Yes (Hospitalization)
  Sender: FDA-Public Use
  Company Number: 2008EU000769

PATIENT
  Age: 38 Year
  Sex: Male

DRUGS (3)
  1. PROGRAF [Suspect]
     Indication: LIVER TRANSPLANT
     Dosage: 0.5 MG D/, ORAL
     Route: 048
     Dates: start: 20030201, end: 20080301
  2. COZAAR [Concomitant]
  3. SINTROM [Concomitant]

REACTIONS (4)
  - GAIT DEVIATION [None]
  - HEMIPARESIS [None]
  - PETIT MAL EPILEPSY [None]
  - SPEECH DISORDER [None]
